FAERS Safety Report 10610157 (Version 1)
Quarter: 2014Q4

REPORT INFORMATION
  Report Type: Spontaneous
  Country: BE (occurrence: None)
  Receive Date: 20141124
  Receipt Date: 20141124
  Transmission Date: 20150529
  Serious: Yes (Other)
  Sender: FDA-Public Use
  Company Number: IMP_08208_2014

PATIENT
  Sex: Male

DRUGS (1)
  1. DIVALPROEX SODIUM. [Suspect]
     Active Substance: DIVALPROEX SODIUM
     Indication: MATERNAL EXPOSURE TIMING UNSPECIFIED
     Route: 064

REACTIONS (13)
  - Conductive deafness [None]
  - Hypertelorism of orbit [None]
  - Aplasia [None]
  - Autism [None]
  - Prominent epicanthal folds [None]
  - Congenital musculoskeletal anomaly [None]
  - Sensory loss [None]
  - Foetal exposure during pregnancy [None]
  - Foetal anticonvulsant syndrome [None]
  - Speech disorder developmental [None]
  - Motor developmental delay [None]
  - Hypertonic bladder [None]
  - Maternal drugs affecting foetus [None]
